FAERS Safety Report 13066692 (Version 1)
Quarter: 2016Q4

REPORT INFORMATION
  Report Type: Spontaneous
  Country: US (occurrence: US)
  Receive Date: 20161227
  Receipt Date: 20161227
  Transmission Date: 20170207
  Serious: Yes (Hospitalization, Other)
  Sender: FDA-Public Use
  Company Number: US-ALLERGAN-1682153US

PATIENT
  Age: 86 Year
  Sex: Female
  Weight: 65.76 kg

DRUGS (4)
  1. LUMIGAN [Concomitant]
     Active Substance: BIMATOPROST
  2. REFRESH CELLUVISC [Concomitant]
     Active Substance: CARBOXYMETHYLCELLULOSE SODIUM
     Dosage: UNK
     Route: 047
  3. COMBIGAN [Suspect]
     Active Substance: BRIMONIDINE TARTRATE\TIMOLOL MALEATE
     Indication: GLAUCOMA
     Dosage: UNK, BID
     Route: 047
     Dates: start: 201406, end: 201512
  4. LATANOPROST. [Concomitant]
     Active Substance: LATANOPROST
     Indication: GLAUCOMA
     Route: 047

REACTIONS (8)
  - Hip fracture [Recovered/Resolved]
  - Mood altered [Unknown]
  - Macular fibrosis [Unknown]
  - Fall [Recovered/Resolved]
  - Cataract [Recovered/Resolved]
  - Asthenia [Unknown]
  - Blood pressure decreased [Recovered/Resolved]
  - Heart rate decreased [Recovered/Resolved]

NARRATIVE: CASE EVENT DATE: 20141206
